FAERS Safety Report 23226050 (Version 1)
Quarter: 2023Q4

REPORT INFORMATION
  Report Type: Report from Study
  Country: US (occurrence: None)
  Receive Date: 20231124
  Receipt Date: 20231124
  Transmission Date: 20240110
  Serious: Yes (Other)
  Sender: FDA-Public Use
  Company Number: 2023A243866

PATIENT
  Age: 84 Year
  Sex: Female
  Weight: 68.5 kg

DRUGS (1)
  1. TAGRISSO [Suspect]
     Active Substance: OSIMERTINIB
     Indication: Lung carcinoma cell type unspecified stage IV
     Route: 048
     Dates: start: 20230217

REACTIONS (7)
  - Mucosal inflammation [Recovered/Resolved]
  - Diarrhoea [Recovered/Resolved]
  - Dry skin [Recovered/Resolved]
  - Flatulence [Unknown]
  - Nausea [Unknown]
  - Neuropathy peripheral [Unknown]
  - Gastrointestinal sounds abnormal [Unknown]
